FAERS Safety Report 9293149 (Version 1)
Quarter: 2013Q2

REPORT INFORMATION
  Report Type: Spontaneous
  Country: US (occurrence: None)
  Receive Date: 20130514
  Receipt Date: 20130514
  Transmission Date: 20140414
  Serious: Yes (Hospitalization, Other)
  Sender: FDA-Public Use
  Company Number: 2013P1005574

PATIENT
  Age: 49 Year
  Sex: Male

DRUGS (3)
  1. INFUMORPH [Suspect]
     Dates: start: 20130424
  2. INFUMORPH [Suspect]
     Indication: POST LAMINECTOMY SYNDROME
     Dates: start: 20130424
  3. SUFENTANIL [Suspect]

REACTIONS (3)
  - Drug withdrawal syndrome [None]
  - Underdose [None]
  - Mental status changes [None]
